FAERS Safety Report 10791669 (Version 4)
Quarter: 2015Q1

REPORT INFORMATION
  Report Type: Spontaneous
  Country: US (occurrence: US)
  Receive Date: 20150213
  Receipt Date: 20150306
  Transmission Date: 20150721
  Serious: No
  Sender: FDA-Public Use
  Company Number: US-009507513-1502USA005428

PATIENT
  Sex: Female

DRUGS (1)
  1. NEXPLANON [Suspect]
     Active Substance: ETONOGESTREL
     Dosage: UNK
     Route: 059
     Dates: start: 201411

REACTIONS (3)
  - Implant site hypersensitivity [Unknown]
  - Implant site bruising [Unknown]
  - Implant site pain [Unknown]

NARRATIVE: CASE EVENT DATE: 201411
